FAERS Safety Report 4381335-8 (Version None)
Quarter: 2004Q2

REPORT INFORMATION
  Report Type: 
  Country: None (occurrence: None)
  Receive Date: 20040617
  Receipt Date: 20040617
  Transmission Date: 20050107
  Serious: Yes (Death)
  Sender: FDA-Public Use
  Company Number: None

PATIENT
  Sex: Male

DRUGS (3)
  1. IRINOTECAN [Suspect]
     Indication: CARCINOMA
     Dosage: 95 MG, ONCE , IV
     Route: 042
     Dates: start: 20040504
  2. IRINOTECAN [Suspect]
     Indication: CHEMOTHERAPY
     Dosage: 95 MG, ONCE , IV
     Route: 042
     Dates: start: 20040504
  3. TAXOTERE [Suspect]
     Indication: CARCINOMA
     Dosage: 55 MG, ONCE IV
     Route: 042
     Dates: start: 20040504

REACTIONS (8)
  - DISEASE PROGRESSION [None]
  - DRUG TOXICITY [None]
  - DYSPHAGIA [None]
  - NAUSEA [None]
  - ODYNOPHAGIA [None]
  - PAIN [None]
  - THERAPEUTIC RESPONSE DECREASED [None]
  - WEIGHT DECREASED [None]
